FAERS Safety Report 4793733-9 (Version None)
Quarter: 2005Q4

REPORT INFORMATION
  Report Type: 
  Country: None (occurrence: None)
  Receive Date: 20051006
  Receipt Date: 20050923
  Transmission Date: 20060501
  Serious: Yes (Other)
  Sender: FDA-Public Use
  Company Number: 2005133712

PATIENT
  Age: 63 Year
  Sex: Male
  Weight: 70.3075 kg

DRUGS (7)
  1. VIAGRA [Suspect]
     Indication: ERECTILE DYSFUNCTION
     Dosage: 50 MG (50 MG, AS NECESSARY), ORAL
     Route: 048
  2. LISINOPRIL [Concomitant]
  3. PREVACID [Concomitant]
  4. DOXAZOSIN (DOXAZOSIN) [Concomitant]
  5. TOPROL-XL [Concomitant]
  6. EFFEXOR [Concomitant]
  7. ACETYLSALICYLIC ACID SRT [Concomitant]

REACTIONS (8)
  - BLOOD CHOLESTEROL INCREASED [None]
  - BLOOD TRIGLYCERIDES INCREASED [None]
  - DEPRESSION [None]
  - DRUG INEFFECTIVE [None]
  - MOVEMENT DISORDER [None]
  - PAIN [None]
  - PROSTATE CANCER [None]
  - URINARY INCONTINENCE [None]
